FAERS Safety Report 10175460 (Version 1)
Quarter: 2014Q2

REPORT INFORMATION
  Report Type: Spontaneous
  Country: US (occurrence: US)
  Receive Date: 20140515
  Receipt Date: 20140515
  Transmission Date: 20141212
  Serious: No
  Sender: FDA-Public Use
  Company Number: US-009507513-1405USA003513

PATIENT
  Age: 56 Year
  Sex: Female

DRUGS (3)
  1. JANUVIA [Suspect]
     Indication: HYPERGLYCAEMIA
     Dosage: UNK
     Route: 048
     Dates: start: 201403
  2. JANUVIA [Suspect]
     Dosage: UNK
     Route: 048
  3. METFORMIN [Concomitant]
     Dosage: 2 500MG TABLETS, 1000MG, BID
     Route: 048

REACTIONS (1)
  - Glycosylated haemoglobin decreased [Unknown]
